FAERS Safety Report 13478232 (Version 1)
Quarter: 2017Q2

REPORT INFORMATION
  Report Type: Not Available
  Country: FR (occurrence: FR)
  Receive Date: 20170425
  Receipt Date: 20170425
  Transmission Date: 20170830
  Serious: Yes (Other)
  Sender: FDA-Public Use
  Company Number: FR-ANIPHARMA-2017-FR-000026

PATIENT
  Age: 31 Year
  Sex: Male

DRUGS (2)
  1. ARIPIPRAZOLE. [Suspect]
     Active Substance: ARIPIPRAZOLE
     Route: 048
  2. LITHIUM CARBONATE (NON-SPECIFIC) [Suspect]
     Active Substance: LITHIUM
     Route: 048

REACTIONS (7)
  - Suicide attempt [Unknown]
  - Nystagmus [Unknown]
  - Nervous system disorder [Unknown]
  - Tremor [Unknown]
  - Muscle rigidity [Unknown]
  - Pseudobulbar palsy [Unknown]
  - Psychomotor hyperactivity [Unknown]
